FAERS Safety Report 23337242 (Version 1)
Quarter: 2023Q4

REPORT INFORMATION
  Report Type: Spontaneous
  Country: US (occurrence: None)
  Receive Date: 20231226
  Receipt Date: 20231226
  Transmission Date: 20240110
  Serious: Yes (Other)
  Sender: FDA-Public Use
  Company Number: US-ROCHE-3478643

PATIENT
  Sex: Male

DRUGS (2)
  1. OCREVUS [Suspect]
     Active Substance: OCRELIZUMAB
     Indication: Primary progressive multiple sclerosis
     Route: 042
     Dates: end: 202303
  2. MAVENCLAD [Suspect]
     Active Substance: CLADRIBINE
     Indication: Primary progressive multiple sclerosis
     Route: 065

REACTIONS (1)
  - Hemiparesis [Unknown]
